FAERS Safety Report 5226261-7 (Version None)
Quarter: 2007Q1

REPORT INFORMATION
  Report Type: 
  Country: None (occurrence: None)
  Receive Date: 20070129
  Receipt Date: 20070125
  Transmission Date: 20070707
  Serious: Yes (Hospitalization, Other)
  Sender: FDA-Public Use
  Company Number: FRWYE114211JAN07

PATIENT
  Age: 45 Year
  Sex: Female

DRUGS (2)
  1. ADVIL [Suspect]
     Indication: INFLUENZA LIKE ILLNESS
     Dosage: 3 TABLETS TOTAL DAILY; ORAL
     Route: 048
     Dates: start: 20061206, end: 20061208
  2. IBUPROFEN [Suspect]
     Indication: INFLUENZA LIKE ILLNESS
     Dosage: 2 DOSES TOTAL DAILY; ORAL
     Route: 048
     Dates: start: 20061204, end: 20061205

REACTIONS (7)
  - ALANINE AMINOTRANSFERASE INCREASED [None]
  - ASPARTATE AMINOTRANSFERASE INCREASED [None]
  - C-REACTIVE PROTEIN INCREASED [None]
  - GAMMA-GLUTAMYLTRANSFERASE INCREASED [None]
  - JAUNDICE [None]
  - LIVER DISORDER [None]
  - PROTHROMBIN TIME SHORTENED [None]
